FAERS Safety Report 8494564-9 (Version None)
Quarter: 2012Q3

REPORT INFORMATION
  Report Type: 
  Country: None (occurrence: None)
  Receive Date: 20120709
  Receipt Date: 20120705
  Transmission Date: 20120928
  Serious: Yes (Other)
  Sender: FDA-Public Use
  Company Number: PHHY2012RO057814

PATIENT
  Sex: Male

DRUGS (1)
  1. EXTAVIA [Suspect]
     Indication: MULTIPLE SCLEROSIS
     Dosage: 250 UG/ML, QOD
     Route: 058
     Dates: start: 20100101

REACTIONS (5)
  - INJECTION SITE WARMTH [None]
  - INJECTION SITE SWELLING [None]
  - PYREXIA [None]
  - INJECTION SITE CELLULITIS [None]
  - INJECTION SITE INFLAMMATION [None]
